FAERS Safety Report 6557891-8 (Version None)
Quarter: 2010Q1

REPORT INFORMATION
  Report Type: 
  Country: None (occurrence: None)
  Receive Date: 20100125
  Receipt Date: 20100104
  Transmission Date: 20100710
  Serious: No
  Sender: FDA-Public Use
  Company Number: 2010-00003

PATIENT
  Age: 48 Year
  Sex: Female
  Weight: 99.7913 kg

DRUGS (9)
  1. COLD REMEDY ORAL MIST [Suspect]
     Dosage: BID - 1 DAY, 2 DOSES
     Dates: start: 20100102, end: 20100102
  2. METFORMIN HCL [Concomitant]
  3. ATENOLOL [Concomitant]
  4. LEVOTHYROXINE SODIUM [Concomitant]
  5. FLEXERIL [Concomitant]
  6. PRAVASTATIN [Concomitant]
  7. VOLTAREN [Concomitant]
  8. PEPCID [Concomitant]
  9. MULTI-VITAMIN [Concomitant]

REACTIONS (1)
  - AGEUSIA [None]
